FAERS Safety Report 9204923 (Version 1)
Quarter: 2013Q2

REPORT INFORMATION
  Report Type: Spontaneous
  Country: CA (occurrence: CA)
  Receive Date: 20130402
  Receipt Date: 20130402
  Transmission Date: 20140414
  Serious: Yes (Life-Threatening)
  Sender: FDA-Public Use
  Company Number: CHPA2013CA005729

PATIENT
  Age: 69 Year
  Sex: Female

DRUGS (1)
  1. BUCKLEY^S UNKNOWN [Suspect]
     Dosage: UNK, UNK
     Route: 048

REACTIONS (3)
  - Choking [Unknown]
  - Apparent death [Unknown]
  - Dyspnoea [Unknown]
